FAERS Safety Report 25825802 (Version 1)
Quarter: 2025Q3

REPORT INFORMATION
  Report Type: Spontaneous
  Country: US (occurrence: US)
  Receive Date: 20250919
  Receipt Date: 20250919
  Transmission Date: 20251020
  Serious: Yes (Hospitalization, Other)
  Sender: YUNG SHIN PHARMACEUTICAL INDUSTRIAL
  Company Number: US-Yung Shin Pharmaceutical Ind.  Co., Ltd.-2184892

PATIENT
  Sex: Male
  Weight: 17.6 kg

DRUGS (3)
  1. CLONIDINE HYDROCHLORIDE [Suspect]
     Active Substance: CLONIDINE HYDROCHLORIDE
     Indication: Behaviour disorder
  2. VITAMIN D [Concomitant]
     Active Substance: VITAMIN D NOS
  3. FLUTICASONE [Concomitant]
     Active Substance: FLUTICASONE

REACTIONS (7)
  - Ileus paralytic [Recovered/Resolved]
  - Toxic encephalopathy [Recovered/Resolved]
  - Product dispensing error [Unknown]
  - Accidental overdose [Unknown]
  - Mental status changes [Recovered/Resolved]
  - Hypertension [Recovered/Resolved]
  - Bradycardia [Recovered/Resolved]
